FAERS Safety Report 18052904 (Version 1)
Quarter: 2020Q3

REPORT INFORMATION
  Report Type: Spontaneous
  Country: US (occurrence: US)
  Receive Date: 20200721
  Receipt Date: 20200721
  Transmission Date: 20201103
  Serious: Yes (Disabling, Other)
  Sender: FDA-Public Use
  Company Number: US-PURDUE-USA-2020-0158105

PATIENT
  Sex: Male

DRUGS (6)
  1. HYDROMORPHONE TABLET (RHODES) [Suspect]
     Active Substance: HYDROMORPHONE
     Indication: PRODUCT USED FOR UNKNOWN INDICATION
     Route: 048
  2. MORPHINE SULFATE EXTENDED?RELEASE TABLETS (RHODES 74?769, 74?862) [Suspect]
     Active Substance: MORPHINE SULFATE
     Indication: PRODUCT USED FOR UNKNOWN INDICATION
     Route: 048
  3. MS CONTIN [Suspect]
     Active Substance: MORPHINE SULFATE
     Indication: PAIN
     Dosage: 120 UNK, MONTHLY
     Route: 048
     Dates: start: 1999
  4. HYDROCODONE BITARTRATE AND ACETAMINOPHEN [Suspect]
     Active Substance: ACETAMINOPHEN\HYDROCODONE BITARTRATE
     Indication: PRODUCT USED FOR UNKNOWN INDICATION
     Route: 048
  5. OXYCODONE HCL CR TABLETS (SIMILAR TO NDA 22?272) [Suspect]
     Active Substance: OXYCODONE HYDROCHLORIDE
     Indication: PAIN
     Dosage: 120 UNK, MONTHLY
     Route: 048
     Dates: start: 1999
  6. MS CONTIN [Suspect]
     Active Substance: MORPHINE SULFATE
     Dosage: 120 UNK, MONTHLY
     Route: 048

REACTIONS (5)
  - Tooth loss [Unknown]
  - Drug dependence [Unknown]
  - Theft [Unknown]
  - Imprisonment [Unknown]
  - Renal disorder [Unknown]

NARRATIVE: CASE EVENT DATE: 2010
